FAERS Safety Report 4512400-X (Version None)
Quarter: 2004Q4

REPORT INFORMATION
  Report Type: 
  Country: None (occurrence: None)
  Receive Date: 20041123
  Receipt Date: 20041108
  Transmission Date: 20050328
  Serious: Yes (Hospitalization)
  Sender: FDA-Public Use
  Company Number: FI-ROCHE-323391

PATIENT
  Age: 70 Year
  Sex: Male
  Weight: 82 kg

DRUGS (12)
  1. TOLCAPONE (TOLCAPONE) [Suspect]
     Indication: PARKINSON'S DISEASE
     Dosage: 100MG 3 TIMES A DAY ORAL
     Route: 048
     Dates: start: 20010616
  2. PERMAX [Suspect]
     Dosage: 3 MG
     Dates: start: 19980512, end: 20021015
  3. SINEMET DEPOT [Concomitant]
  4. MADOPARK QUICK [Concomitant]
  5. SIFROL [Concomitant]
  6. EMCONCOR [Concomitant]
  7. CARDACE [Concomitant]
  8. FURESIS [Concomitant]
  9. ISMOX [Concomitant]
  10. PROSCAR [Concomitant]
  11. DUREKAL [Concomitant]
  12. BUVENTOL EASYHEALER [Concomitant]

REACTIONS (5)
  - CARDIAC FAILURE [None]
  - DIARRHOEA [None]
  - PLEURISY [None]
  - PNEUMONIA [None]
  - SPINAL FRACTURE [None]
